FAERS Safety Report 14747643 (Version 2)
Quarter: 2018Q2

REPORT INFORMATION
  Report Type: Report from Study
  Country: TW (occurrence: TW)
  Receive Date: 20180411
  Receipt Date: 20180423
  Transmission Date: 20180711
  Serious: No
  Sender: FDA-Public Use
  Company Number: PHHY2015TW037589

PATIENT
  Age: 53 Year
  Sex: Male

DRUGS (11)
  1. RINDERON V [Concomitant]
     Active Substance: BETAMETHASONE VALERATE
     Indication: PROPHYLAXIS
     Dosage: 1 DF, UNK
     Route: 065
     Dates: start: 20151210, end: 20151211
  2. GENTAMYCIN SULFATE [Concomitant]
     Active Substance: GENTAMICIN SULFATE
     Indication: INFECTION PROPHYLAXIS
     Dosage: 1 DF, UNK (80MG/2M)
     Route: 065
     Dates: start: 20151210, end: 20151221
  3. PANTOLOC [Concomitant]
     Active Substance: PANTOPRAZOLE SODIUM
     Indication: PROPHYLAXIS
     Dosage: 40 MG/VIA, UNK
     Route: 042
     Dates: start: 20151210, end: 20151211
  4. APO TRAMADOL/PARACETAMOL [Concomitant]
     Indication: PROPHYLAXIS
     Dosage: UNK
     Dates: start: 20151210, end: 20151222
  5. LACTUL [Concomitant]
     Indication: PROPHYLAXIS
     Dosage: 300 ML/BO, UNK
     Route: 048
     Dates: start: 20151221, end: 20151221
  6. GOWELL [Concomitant]
     Indication: PROPHYLAXIS
     Dosage: 1 DF, UNK
     Route: 048
     Dates: start: 20151210, end: 20151211
  7. TASIGNA [Suspect]
     Active Substance: NILOTINIB
     Indication: CHRONIC MYELOID LEUKAEMIA
     Dosage: 600 MG, UNK
     Route: 048
     Dates: start: 20140409
  8. DULCOLAX NOS [Concomitant]
     Active Substance: BISACODYL OR DOCUSATE SODIUM
     Indication: PROPHYLAXIS
     Dosage: 5 MG, UNK
     Route: 054
     Dates: start: 20151221, end: 20151221
  9. S-60 [Concomitant]
     Dosage: 1 G/VIAL, UNK
     Route: 065
     Dates: start: 20151217, end: 20151221
  10. SENNAPUR [Concomitant]
     Indication: PROPHYLAXIS
     Dosage: 12.5 MG, UNK
     Route: 048
     Dates: start: 20151211
  11. S-60 [Concomitant]
     Indication: INFECTION PROPHYLAXIS
     Dosage: 1 G/VIAL, UNK
     Route: 065
     Dates: start: 20151210, end: 20151217

REACTIONS (1)
  - Nocturia [Recovering/Resolving]

NARRATIVE: CASE EVENT DATE: 20141112
